FAERS Safety Report 8082893-2 (Version None)
Quarter: 2012Q1

REPORT INFORMATION
  Report Type: 
  Country: None (occurrence: None)
  Receive Date: 20120127
  Receipt Date: 20110119
  Transmission Date: 20120608
  Serious: No
  Sender: FDA-Public Use
  Company Number: US-ABBOTT-11P-163-0700706-00

PATIENT
  Sex: Female
  Weight: 38.59 kg

DRUGS (4)
  1. HUMIRA [Suspect]
     Indication: CROHN'S DISEASE
     Route: 058
     Dates: start: 20090701
  2. PENTASA [Concomitant]
     Indication: CROHN'S DISEASE
     Dates: start: 20090101
  3. BIRTH CONTROL [Concomitant]
     Indication: CONTRACEPTION
  4. ASCORBIC ACID [Concomitant]
     Indication: VITAMIN SUPPLEMENTATION

REACTIONS (4)
  - INJECTION SITE HAEMATOMA [None]
  - RED BLOOD CELL SEDIMENTATION RATE INCREASED [None]
  - INJECTION SITE PAIN [None]
  - ABDOMINAL PAIN [None]
